FAERS Safety Report 14915231 (Version 1)
Quarter: 2018Q2

REPORT INFORMATION
  Report Type: Spontaneous
  Country: US (occurrence: US)
  Receive Date: 20180518
  Receipt Date: 20180518
  Transmission Date: 20180711
  Serious: No
  Sender: FDA-Public Use
  Company Number: US-INCYTE CORPORATION-2018IN004565

PATIENT

DRUGS (2)
  1. WARFARIN SODIUM. [Concomitant]
     Active Substance: WARFARIN SODIUM
     Indication: PRODUCT USED FOR UNKNOWN INDICATION
     Route: 065
  2. JAKAFI [Suspect]
     Active Substance: RUXOLITINIB
     Indication: IRON DEFICIENCY ANAEMIA
     Dosage: 10 MG, BID
     Route: 048
     Dates: start: 20170509

REACTIONS (2)
  - Dry skin [Unknown]
  - Off label use [Unknown]

NARRATIVE: CASE EVENT DATE: 20170509
